FAERS Safety Report 12138490 (Version 1)
Quarter: 2016Q1

REPORT INFORMATION
  Report Type: Spontaneous
  Country: US (occurrence: US)
  Receive Date: 20160302
  Receipt Date: 20160302
  Transmission Date: 20160526
  Serious: No
  Sender: FDA-Public Use
  Company Number: US-ABBVIE-15P-163-1365643-00

PATIENT
  Sex: Male

DRUGS (1)
  1. DEPAKENE [Suspect]
     Active Substance: VALPROIC ACID
     Indication: SEIZURE
     Route: 065

REACTIONS (1)
  - Vomiting [Not Recovered/Not Resolved]
